FAERS Safety Report 4569697-X (Version None)
Quarter: 2005Q1

REPORT INFORMATION
  Report Type: 
  Country: None (occurrence: None)
  Receive Date: 20050201
  Receipt Date: 20050118
  Transmission Date: 20050727
  Serious: Yes (Hospitalization)
  Sender: FDA-Public Use
  Company Number: 105870ISR

PATIENT
  Sex: Female

DRUGS (2)
  1. METOPROLOL [Suspect]
     Dosage: 50 MILLIGRAM ORAL
     Route: 048
     Dates: start: 20010101
  2. LIDOCAINE [Suspect]
     Indication: TENDONITIS
     Dates: start: 20041101

REACTIONS (3)
  - DRUG INTERACTION [None]
  - SHOCK [None]
  - SYNCOPE [None]
